FAERS Safety Report 18611011 (Version 1)
Quarter: 2020Q4

REPORT INFORMATION
  Report Type: Spontaneous
  Country: US (occurrence: US)
  Receive Date: 20201211
  Receipt Date: 20201211
  Transmission Date: 20210114
  Serious: Yes (Death)
  Sender: FDA-Public Use
  Company Number: None

PATIENT
  Age: 91 Year
  Sex: Male

DRUGS (1)
  1. PROMACTA [Suspect]
     Active Substance: ELTROMBOPAG OLAMINE
     Indication: IMMUNE THROMBOCYTOPENIA
     Route: 048
     Dates: start: 20180510

REACTIONS (5)
  - Multiple organ dysfunction syndrome [None]
  - Metastases to bone [None]
  - Discomfort [None]
  - Sepsis [None]
  - Pain [None]

NARRATIVE: CASE EVENT DATE: 20200221
